FAERS Safety Report 6089680-5 (Version None)
Quarter: 2009Q1

REPORT INFORMATION
  Report Type: 
  Country: None (occurrence: None)
  Receive Date: 20090224
  Receipt Date: 20090216
  Transmission Date: 20090719
  Serious: Yes (Death, Other)
  Sender: FDA-Public Use
  Company Number: IN-ROXANE LABORATORIES, INC.-2009-RO-00149RO

PATIENT
  Age: 48 Year
  Sex: Male

DRUGS (6)
  1. LITHIUM CARBONATE [Suspect]
     Indication: BIPOLAR I DISORDER
     Dosage: 600MG
  2. VALPROATE SODIUM [Suspect]
     Indication: BIPOLAR I DISORDER
     Dosage: 1G
  3. VALPROATE SODIUM [Suspect]
     Indication: STATUS EPILEPTICUS
  4. CEFTRIAXONE [Suspect]
  5. AUGMENTIN [Suspect]
  6. LEVOTHYROXINE SODIUM [Suspect]

REACTIONS (6)
  - DEATH [None]
  - HYPOTENSION [None]
  - HYPOTHYROIDISM [None]
  - PNEUMONIA ASPIRATION [None]
  - STATUS EPILEPTICUS [None]
  - THERAPEUTIC AGENT TOXICITY [None]
